FAERS Safety Report 15564118 (Version 2)
Quarter: 2018Q4

REPORT INFORMATION
  Report Type: Spontaneous
  Country: JP (occurrence: JP)
  Receive Date: 20181030
  Receipt Date: 20181129
  Transmission Date: 20190205
  Serious: Yes (Death)
  Sender: FDA-Public Use
  Company Number: JP-ASTELLAS-2018JP019818

PATIENT
  Age: 8 Decade
  Sex: Male

DRUGS (1)
  1. FUNGUARD [Suspect]
     Active Substance: MICAFUNGIN SODIUM
     Indication: FUNGAL INFECTION
     Dosage: 300 MG/DAY, UNKNOWN FREQ.
     Route: 042
     Dates: start: 20181010

REACTIONS (1)
  - Bacteraemia [Fatal]
